FAERS Safety Report 10900432 (Version 1)
Quarter: 2015Q1

REPORT INFORMATION
  Report Type: Report from Study
  Country: BR (occurrence: BR)
  Receive Date: 20150310
  Receipt Date: 20150310
  Transmission Date: 20150721
  Serious: Yes (Hospitalization, Other)
  Sender: FDA-Public Use
  Company Number: BR-BIOGENIDEC-2015BI026734

PATIENT
  Age: 57 Year
  Sex: Female

DRUGS (1)
  1. TYSABRI [Suspect]
     Active Substance: NATALIZUMAB
     Indication: MULTIPLE SCLEROSIS
     Dates: start: 20130207, end: 201408

REACTIONS (9)
  - General physical health deterioration [Unknown]
  - Necrosis [Unknown]
  - Incontinence [Unknown]
  - Tuberculosis of central nervous system [Unknown]
  - Aphasia [Unknown]
  - Fall [Recovered/Resolved]
  - Mobility decreased [Unknown]
  - Renal disorder [Unknown]
  - Balance disorder [Unknown]

NARRATIVE: CASE EVENT DATE: 2014
